FAERS Safety Report 19519648 (Version 1)
Quarter: 2021Q3

REPORT INFORMATION
  Report Type: Spontaneous
  Country: NL (occurrence: NL)
  Receive Date: 20210712
  Receipt Date: 20210712
  Transmission Date: 20211014
  Serious: Yes (Life-Threatening, Other)
  Sender: FDA-Public Use
  Company Number: NL-ACCORD-231235

PATIENT
  Age: 65 Year
  Sex: Male
  Weight: 98 kg

DRUGS (6)
  1. TRESIBA [Suspect]
     Active Substance: INSULIN DEGLUDEC
     Indication: DIABETES MELLITUS
     Dosage: 40UH IN THE EVENING, 100U/ML INJECTION SOLUTION /
     Dates: start: 202102
  2. ASTRAZENECA COVID?19 VACCINE [Suspect]
     Active Substance: AZD-1222
     Indication: COVID-19 IMMUNISATION
     Dosage: INJECTION SOLUTION / COVID?19 VACCINE ASTRAZENECA?INJECTION SOLUTION
     Dates: start: 20210503
  3. METHOTREXATE EMTHEXATE [Suspect]
     Active Substance: METHOTREXATE
     Indication: POLYARTHRITIS
     Dosage: 1 X PER WEEK, INJECTION SOLUTION 2.5 MG/ML / EMTHEXATE PF INJECTION?SOLUTION 2.5 MG/ML VIAL 2 ML
     Dates: start: 202103, end: 20210502
  4. NOVORAPID [Concomitant]
     Active Substance: INSULIN ASPART
     Dosage: 16UH IN THE MORNING, 20UH IN THE EVENING, ASPART INJECTION SOLUTION 100 U/ML /
     Dates: start: 2018, end: 20210517
  5. METFORMIN [Concomitant]
     Active Substance: METFORMIN HYDROCHLORIDE
     Dosage: TABLET 500 MG, 1000MG IN THE MORNING, 1000MG IN THE EVENING
     Dates: start: 2016
  6. MITOMYCIN. [Suspect]
     Active Substance: MITOMYCIN
     Indication: BLADDER CANCER
     Dosage: INFUSION, 11/2, 18/2, 25/2, 4/3, 1/4, 29/4
     Dates: start: 202102

REACTIONS (20)
  - Myalgia [Recovered/Resolved]
  - Insomnia [Recovered/Resolved]
  - Anal incontinence [Recovered/Resolved]
  - Headache [Recovered/Resolved]
  - Pyrexia [Recovered/Resolved]
  - Hallucination [Recovered/Resolved]
  - Parosmia [Recovered/Resolved]
  - Dry mouth [Recovered/Resolved]
  - Tachycardia [Recovered/Resolved]
  - Urinary incontinence [Recovered/Resolved]
  - Malaise [Recovered/Resolved]
  - Chills [Recovered/Resolved]
  - Platelet count decreased [Recovered/Resolved]
  - Cough [Recovered/Resolved]
  - Hyperglycaemia [Recovered/Resolved]
  - Disturbance in attention [Recovering/Resolving]
  - Decreased appetite [Recovered/Resolved]
  - Oropharyngeal pain [Recovered/Resolved]
  - Fatigue [Recovering/Resolving]
  - Dyspnoea [Recovered/Resolved]

NARRATIVE: CASE EVENT DATE: 20210505
